FAERS Safety Report 11394988 (Version 1)
Quarter: 2015Q3

REPORT INFORMATION
  Report Type: Spontaneous
  Country: US (occurrence: US)
  Receive Date: 20150819
  Receipt Date: 20150819
  Transmission Date: 20151125
  Serious: Yes (Other)
  Sender: FDA-Public Use
  Company Number: US-HOSPIRA-1901085

PATIENT
  Age: 26 Month
  Sex: Male

DRUGS (8)
  1. CYCLOPHOSPHAMIDE. [Suspect]
     Active Substance: CYCLOPHOSPHAMIDE
     Indication: MEDULLOBLASTOMA
     Dosage: NOT REPORTED
  2. THIOTEPA. [Suspect]
     Active Substance: THIOTEPA
     Indication: MEDULLOBLASTOMA
     Dosage: NOT REPORTED
  3. CARBOPLATIN. [Suspect]
     Active Substance: CARBOPLATIN
     Indication: MEDULLOBLASTOMA
     Dosage: NOT REPORTED
  4. THERAPEUTIC RADIOPHARMACEUTICALS [Suspect]
     Active Substance: RADIATION THERAPY
     Indication: MEDULLOBLASTOMA
     Dosage: 18.0 GY RBE
  5. CISPLATIN. [Suspect]
     Active Substance: CISPLATIN
     Indication: MEDULLOBLASTOMA
     Dosage: NOT REPORTED
  6. THERAPEUTIC RADIOPHARMACEUTICALS [Suspect]
     Active Substance: RADIATION THERAPY
     Indication: MEDULLOBLASTOMA
     Dosage: 50.4 GY RBE
  7. VINCRISTINE SULFATE. [Suspect]
     Active Substance: VINCRISTINE SULFATE
     Indication: MEDULLOBLASTOMA
     Dosage: NOT REPORTED
  8. ETOPOSIDE. [Suspect]
     Active Substance: ETOPOSIDE
     Indication: MEDULLOBLASTOMA
     Dosage: NOT REPORTED

REACTIONS (2)
  - Hypopituitarism [Unknown]
  - Growth hormone deficiency [Unknown]
